FAERS Safety Report 7369042-0 (Version None)
Quarter: 2011Q1

REPORT INFORMATION
  Report Type: 
  Country: None (occurrence: None)
  Receive Date: 20110314
  Receipt Date: 20110304
  Transmission Date: 20110831
  Serious: Yes (Disabling)
  Sender: FDA-Public Use
  Company Number: 850774

PATIENT
  Age: 1 Month
  Sex: Male
  Weight: 5 kg

DRUGS (16)
  1. CYCLOSPORINE [Concomitant]
  2. FLUDARABINE PHOSPHATE [Suspect]
     Indication: BONE MARROW CONDITIONING REGIMEN
     Dosage: 30 MG/M 2 MILLIGRAM(S)/SQ. METER (1 DAY) INTRAVENOUS (NOT OTHERWISE SPECIFIED)
     Route: 042
     Dates: start: 20110114, end: 20110118
  3. CAMPATH [Concomitant]
  4. CLONAZEPAM [Concomitant]
  5. ACYCLOVIR [Concomitant]
  6. TACROLIMUS [Concomitant]
  7. ONDANSETRON [Concomitant]
  8. (TREOSULFAN) [Suspect]
     Indication: BONE MARROW CONDITIONING REGIMEN
     Dosage: SEE IMAGE
     Route: 042
     Dates: start: 20110114, end: 20110116
  9. (TREOSULFAN) [Suspect]
     Indication: OFF LABEL USE
     Dosage: SEE IMAGE
     Route: 042
     Dates: start: 20110114, end: 20110116
  10. (TREOSULFAN) [Suspect]
     Indication: BONE MARROW CONDITIONING REGIMEN
     Dosage: SEE IMAGE
     Route: 042
     Dates: start: 20110114, end: 20110116
  11. (TREOSULFAN) [Suspect]
     Indication: OFF LABEL USE
     Dosage: SEE IMAGE
     Route: 042
     Dates: start: 20110114, end: 20110116
  12. (KIOVIG /00025201/) [Concomitant]
  13. AMBISOME [Concomitant]
  14. COTRIM [Concomitant]
  15. MYCOPHENOLATE MOFETIL [Concomitant]
  16. ALLOPURINOL [Concomitant]

REACTIONS (3)
  - OFF LABEL USE [None]
  - CONVULSION [None]
  - HYPERTONIA [None]
